FAERS Safety Report 20011030 (Version 1)
Quarter: 2021Q4

REPORT INFORMATION
  Report Type: Spontaneous
  Country: CA (occurrence: CA)
  Receive Date: 20211029
  Receipt Date: 20211029
  Transmission Date: 20220303
  Serious: Yes (Hospitalization)
  Sender: FDA-Public Use
  Company Number: CA-009507513-2110CAN007901

PATIENT
  Age: 37 Year
  Sex: Female

DRUGS (1)
  1. TEMODAL [Suspect]
     Active Substance: TEMOZOLOMIDE
     Dosage: 140 MILLIGRAM

REACTIONS (3)
  - Corneal perforation [Unknown]
  - Disease recurrence [Unknown]
  - Drug reaction with eosinophilia and systemic symptoms [Unknown]
